FAERS Safety Report 10556155 (Version 5)
Quarter: 2015Q1

REPORT INFORMATION
  Report Type: Report from Study
  Country: JP (occurrence: JP)
  Receive Date: 20141031
  Receipt Date: 20150304
  Transmission Date: 20150720
  Serious: Yes (Hospitalization)
  Sender: FDA-Public Use
  Company Number: JP-ROCHE-1482050

PATIENT
  Age: 80 Year
  Sex: Male
  Weight: 58 kg

DRUGS (10)
  1. PREDNISOLONE. [Concomitant]
     Active Substance: PREDNISOLONE
     Dosage: MORNING
     Route: 048
  2. MAGLAX [Concomitant]
     Active Substance: MAGNESIUM OXIDE
     Dosage: EVENING
     Route: 048
  3. CASODEX [Concomitant]
     Active Substance: BICALUTAMIDE
     Route: 065
  4. PARIET [Concomitant]
     Active Substance: RABEPRAZOLE SODIUM
     Dosage: MORNING
     Route: 048
  5. RENAGEL [Concomitant]
     Active Substance: SEVELAMER HYDROCHLORIDE
     Route: 048
  6. METHOXY POLYETHYLENE GLYCOL-EPOETIN BETA [Suspect]
     Active Substance: PEGZEREPOETIN ALFA
     Indication: NEPHROGENIC ANAEMIA
     Route: 065
     Dates: start: 20140303
  7. AMLODIPINE [Concomitant]
     Active Substance: AMLODIPINE BESYLATE
     Route: 048
  8. ARTIST [Concomitant]
     Active Substance: CARVEDILOL
     Dosage: EVENING
     Route: 048
  9. NICORANDIL [Concomitant]
     Active Substance: NICORANDIL
     Route: 048
  10. LEUPLIN [Concomitant]
     Active Substance: LEUPROLIDE ACETATE
     Route: 065

REACTIONS (4)
  - Biopsy bladder [Recovered/Resolved]
  - Ureteric cancer [Not Recovered/Not Resolved]
  - Prostate cancer metastatic [Recovering/Resolving]
  - Nephroureterectomy [Recovered/Resolved]

NARRATIVE: CASE EVENT DATE: 20141016
